FAERS Safety Report 14648658 (Version 1)
Quarter: 2020Q3

REPORT INFORMATION
  Report Type: Spontaneous
  Country: DE (occurrence: DE)
  Receive Date: 20180316
  Receipt Date: 20180316
  Transmission Date: 20201105
  Serious: Yes (Congenital Anomaly, Other)
  Sender: FDA-Public Use
  Company Number: DE-PFIZER INC-2018103934

PATIENT
  Sex: Female
  Weight: 4.14 kg

DRUGS (7)
  1. LANTUS [Concomitant]
     Active Substance: INSULIN GLARGINE
     Indication: TYPE 1 DIABETES MELLITUS
     Dosage: UNK
     Route: 064
  2. PERTUSSIS VACCINE [Concomitant]
     Active Substance: PERTUSSIS VACCINE
     Indication: IMMUNISATION
     Dosage: UNK
     Route: 064
  3. VENLAFAXINE HCL [Suspect]
     Active Substance: VENLAFAXINE HYDROCHLORIDE
     Indication: ANXIETY DISORDER
     Dosage: 150 MG, DAILY
     Route: 064
     Dates: start: 20161019
  4. VENLAFAXINE HCL [Suspect]
     Active Substance: VENLAFAXINE HYDROCHLORIDE
     Indication: POST-TRAUMATIC STRESS DISORDER
     Dosage: 225 MG, DAILY
     Route: 064
     Dates: end: 20170706
  5. DOPPELHERZ [Concomitant]
     Active Substance: DIETARY SUPPLEMENT
     Indication: PROPHYLAXIS OF NEURAL TUBE DEFECT
     Dosage: UNK
     Route: 064
  6. FINGOLIMOD. [Suspect]
     Active Substance: FINGOLIMOD
     Indication: MULTIPLE SCLEROSIS
     Dosage: 0.5 MG, DAILY
     Route: 064
  7. HUMALOG [Concomitant]
     Active Substance: INSULIN LISPRO
     Indication: TYPE 1 DIABETES MELLITUS
     Dosage: UNK
     Route: 064

REACTIONS (4)
  - Exposure during pregnancy [Unknown]
  - Large for dates baby [Unknown]
  - Transient tachypnoea of the newborn [Recovered/Resolved]
  - Ventricular septal defect [Unknown]

NARRATIVE: CASE EVENT DATE: 20161019
